FAERS Safety Report 25182997 (Version 1)
Quarter: 2025Q2

REPORT INFORMATION
  Report Type: Spontaneous
  Country: US (occurrence: US)
  Receive Date: 20250410
  Receipt Date: 20250410
  Transmission Date: 20250717
  Serious: No
  Sender: LEADING PHARMA
  Company Number: US-LEADINGPHARMA-US-2025LEASPO00066

PATIENT
  Sex: Female

DRUGS (1)
  1. FOLIC ACID [Suspect]
     Active Substance: FOLIC ACID
     Indication: Planning to become pregnant
     Route: 065

REACTIONS (1)
  - Drug ineffective for unapproved indication [Unknown]
